FAERS Safety Report 15363828 (Version 3)
Quarter: 2018Q4

REPORT INFORMATION
  Report Type: Report from Study
  Country: US (occurrence: US)
  Receive Date: 20180908
  Receipt Date: 20181203
  Transmission Date: 20190204
  Serious: No
  Sender: FDA-Public Use
  Company Number: PHEH2018US036811

PATIENT
  Sex: Male

DRUGS (4)
  1. COSENTYX [Suspect]
     Active Substance: SECUKINUMAB
     Dosage: 150 MG, QMO
     Route: 065
  2. COSENTYX [Suspect]
     Active Substance: SECUKINUMAB
     Indication: PRODUCT USED FOR UNKNOWN INDICATION
     Dosage: 150 MG, QW
     Route: 058
     Dates: start: 20180816
  3. COSENTYX [Suspect]
     Active Substance: SECUKINUMAB
     Dosage: 150 MG, QW
     Route: 065
     Dates: start: 20180913
  4. ENBREL [Suspect]
     Active Substance: ETANERCEPT
     Indication: PRODUCT USED FOR UNKNOWN INDICATION
     Dosage: UNK
     Route: 065

REACTIONS (10)
  - Erythema [Unknown]
  - Condition aggravated [Unknown]
  - Pruritus [Unknown]
  - Hypoaesthesia [Unknown]
  - Dry skin [Unknown]
  - Drug ineffective [Unknown]
  - Scab [Unknown]
  - Pain [Unknown]
  - Musculoskeletal stiffness [Unknown]
  - Skin haemorrhage [Unknown]
